FAERS Safety Report 17824970 (Version 1)
Quarter: 2020Q2

REPORT INFORMATION
  Report Type: Spontaneous
  Country: US (occurrence: US)
  Receive Date: 20200526
  Receipt Date: 20200526
  Transmission Date: 20200714
  Serious: Yes (Other)
  Sender: FDA-Public Use
  Company Number: None

PATIENT
  Age: 56 Year
  Sex: Male
  Weight: 99 kg

DRUGS (15)
  1. PROPOFOL VARIABLE RATE CONTINUOUS IV [Concomitant]
     Dates: start: 20200517
  2. FAMOTIDINE 20MG IV DAILY [Concomitant]
     Dates: start: 20200518, end: 20200521
  3. ASCORBIC ACID PO 1000MG BID [Concomitant]
     Dates: start: 20200518
  4. ENOXAPARIN 90MG SQ Q12HRS [Concomitant]
     Dates: start: 20200518, end: 20200521
  5. INSULIN LISPRO SQ SLIDING SCALE [Concomitant]
     Dates: start: 20200521
  6. ZINC 220MG ORAL BID [Concomitant]
     Dates: start: 20200518
  7. NOREPINEPHRINE VARIABLE RATE CONTINUOUS IV [Concomitant]
     Dates: start: 20200518
  8. REMDESIVIR. [Suspect]
     Active Substance: REMDESIVIR
     Indication: COVID-19
     Dosage: ?          OTHER FREQUENCY:DAILY AFTER 200MG;?
     Route: 042
     Dates: start: 20200521, end: 20200524
  9. CEFTRIAXONE 1GM IIV DAILY [Concomitant]
     Dates: start: 20200519
  10. LORATADINE 10MG PO DAILY [Concomitant]
     Dates: start: 20200518
  11. ATORVASTATIN 10MG PO DAILY [Concomitant]
     Dates: start: 20200518
  12. CLOPIDOGREL 75MG PO DAILY [Concomitant]
     Dates: start: 20200518
  13. METHYLPREDNISOLONE 125MG IV Q12HRS [Concomitant]
     Dates: start: 20200519
  14. NORCO 5/325MG PO Q6HRS PRN [Concomitant]
     Dates: start: 20200517
  15. FENTANYL VARIABLE RATE CONTINUOUS IV [Concomitant]
     Dates: start: 20200520

REACTIONS (1)
  - Blood creatinine increased [None]

NARRATIVE: CASE EVENT DATE: 20200525
